FAERS Safety Report 5014432-4 (Version None)
Quarter: 2006Q2

REPORT INFORMATION
  Report Type: 
  Country: None (occurrence: None)
  Receive Date: 20060531
  Receipt Date: 20050926
  Transmission Date: 20061013
  Serious: Yes (Hospitalization, Other)
  Sender: FDA-Public Use
  Company Number: PHEH2005US10703

PATIENT
  Age: 71 Year
  Sex: Male

DRUGS (12)
  1. AREDIA [Suspect]
  2. ZOMETA [Suspect]
     Dates: end: 20040701
  3. CHEMOTHERAPEUTICS,OTHER [Suspect]
     Dosage: UNK, UNK
     Dates: end: 20040801
  4. PREDNISONE [Suspect]
     Indication: MYALGIA
     Dosage: 10 MG, QD
     Route: 048
  5. PREDNISONE [Suspect]
     Dosage: 5 MG, QOD
     Route: 048
  6. PREDNISONE [Suspect]
     Dosage: 2.5 MG, QOD
     Route: 048
  7. DURAGESIC-100 [Concomitant]
     Dosage: 100 MCG/HR, Q72H
  8. VICODIN [Concomitant]
  9. DARVON [Concomitant]
  10. REMERON [Concomitant]
  11. LASIX [Concomitant]
  12. POTASSIUM [Concomitant]

REACTIONS (11)
  - APICAL GRANULOMA [None]
  - BONE DISORDER [None]
  - CELLULITIS [None]
  - GINGIVAL SWELLING [None]
  - IMPAIRED HEALING [None]
  - OSTEONECROSIS [None]
  - PNEUMONIA [None]
  - TOOTH DISORDER [None]
  - TOOTH EXTRACTION [None]
  - TOOTHACHE [None]
  - WOUND DRAINAGE [None]
